FAERS Safety Report 4900107-6 (Version None)
Quarter: 2006Q1

REPORT INFORMATION
  Report Type: 
  Country: None (occurrence: None)
  Receive Date: 20060203
  Receipt Date: 20050414
  Transmission Date: 20060701
  Serious: Yes (Hospitalization)
  Sender: FDA-Public Use
  Company Number: 200513159US

PATIENT
  Sex: Female
  Weight: 109 kg

DRUGS (19)
  1. KETEK [Suspect]
     Indication: SINUSITIS
     Dosage: DOSE: TWO 400MG TABLETS
     Route: 048
     Dates: start: 20050314, end: 20050314
  2. PREDNISONE [Concomitant]
     Indication: SINUSITIS
     Dosage: DOSE: UNKNOWN
  3. SYNTHROID [Concomitant]
     Indication: HYPOTHYROIDISM
     Dosage: DOSE: UNKNOWN
  4. HYZAAR [Concomitant]
     Indication: HYPERTENSION
     Dosage: DOSE: UNKNOWN
  5. CATAPRES [Concomitant]
     Indication: HYPERTENSION
     Dosage: DOSE: UNKNOWN
  6. TRICOR [Concomitant]
     Indication: BLOOD CHOLESTEROL INCREASED
     Dosage: DOSE: UNKNOWN
  7. AMBIEN [Concomitant]
     Dosage: DOSE: UNKNOWN
  8. LASIX [Concomitant]
     Dosage: DOSE: UNKNOWN
  9. ALBUTEROL SULFATE AUTOHALER [Concomitant]
     Dosage: DOSE: UNKNOWN
  10. FOLIC ACID [Concomitant]
     Dosage: DOSE: UNKNOWN
  11. PROTONIX [Concomitant]
     Dosage: DOSE: UNKNOWN
  12. PEPCID [Concomitant]
     Dosage: DOSE: UNKNOWN
  13. LEVAQUIN [Concomitant]
     Dosage: DOSE: UNK
  14. AVELOX [Concomitant]
     Indication: SINUSITIS
     Dosage: DOSE: UNK
  15. MEDROL [Concomitant]
     Indication: SINUSITIS
     Dosage: DOSE: UNK
  16. ZITHROMAX [Concomitant]
     Indication: SINUSITIS
     Dosage: DOSE: UNK
  17. PULMICORT [Concomitant]
     Dosage: DOSE: UNK
     Dates: start: 20050302
  18. ATROVENT [Concomitant]
     Dosage: DOSE: UNK
     Dates: start: 20050302
  19. NASACORT [Concomitant]
     Dosage: DOSE: UNK

REACTIONS (5)
  - ASTHENIA [None]
  - GASTROINTESTINAL PAIN [None]
  - HYPERHIDROSIS [None]
  - NAUSEA [None]
  - PALPITATIONS [None]
